FAERS Safety Report 23297077 (Version 1)
Quarter: 2023Q4

REPORT INFORMATION
  Report Type: Spontaneous
  Country: CN (occurrence: CN)
  Receive Date: 20231214
  Receipt Date: 20231214
  Transmission Date: 20240110
  Serious: Yes (Hospitalization)
  Sender: FDA-Public Use
  Company Number: CN-PFIZER INC-PV202300200649

PATIENT
  Age: 8 Year
  Sex: Male
  Weight: 38 kg

DRUGS (2)
  1. METHOTREXATE SODIUM [Suspect]
     Active Substance: METHOTREXATE SODIUM
     Indication: Non-Hodgkin^s lymphoma
     Dosage: 3.63 G, 1X/DAY
     Dates: start: 20231128, end: 20231128
  2. VINDESINE SULFATE [Suspect]
     Active Substance: VINDESINE SULFATE
     Indication: Non-Hodgkin^s lymphoma
     Dosage: 5.63 MG, 1X/DAY
     Route: 041
     Dates: start: 20231128, end: 20231128

REACTIONS (7)
  - Myelosuppression [Recovering/Resolving]
  - Mucosal disorder [Recovering/Resolving]
  - Pallor [Recovering/Resolving]
  - Conjunctival pallor [Recovering/Resolving]
  - Lip dry [Unknown]
  - Lip ulceration [Recovering/Resolving]
  - Erythema [Not Recovered/Not Resolved]

NARRATIVE: CASE EVENT DATE: 20231204
